FAERS Safety Report 15298301 (Version 2)
Quarter: 2018Q3

REPORT INFORMATION
  Report Type: Report from Study
  Country: US (occurrence: US)
  Receive Date: 20180820
  Receipt Date: 20180907
  Transmission Date: 20181010
  Serious: Yes (Hospitalization, Other)
  Sender: FDA-Public Use
  Company Number: US-ACTELION-A-US2017-164272

PATIENT
  Age: 57 Year
  Sex: Male
  Weight: 86.17 kg

DRUGS (8)
  1. ESBRIET [Concomitant]
     Active Substance: PIRFENIDONE
     Dosage: UNK
     Dates: start: 201803
  2. FUROSEMIDE. [Concomitant]
     Active Substance: FUROSEMIDE
     Dosage: 40 MG, BID
  3. UPTRAVI [Suspect]
     Active Substance: SELEXIPAG
     Indication: PULMONARY ARTERIAL HYPERTENSION
     Dosage: 1200 MCG, BID
     Route: 048
  4. UPTRAVI [Suspect]
     Active Substance: SELEXIPAG
     Dosage: 1600 MCG, BID
     Route: 048
  5. UPTRAVI [Suspect]
     Active Substance: SELEXIPAG
     Dosage: 800 MCG, BID
     Route: 048
  6. REVATIO [Concomitant]
     Active Substance: SILDENAFIL CITRATE
     Dosage: 20 MG, TID
  7. POTASSIUM CHLORIDE. [Concomitant]
     Active Substance: POTASSIUM CHLORIDE
     Dosage: 20 MCG, BID
  8. SERTRALINE [Concomitant]
     Active Substance: SERTRALINE HYDROCHLORIDE
     Dosage: 50 MG, QD

REACTIONS (4)
  - Hypotension [Recovered/Resolved]
  - Back pain [Unknown]
  - Lung transplant [Unknown]
  - Dyspnoea [Unknown]

NARRATIVE: CASE EVENT DATE: 201808
